FAERS Safety Report 18546952 (Version 1)
Quarter: 2020Q4

REPORT INFORMATION
  Report Type: Spontaneous
  Country: DE (occurrence: DE)
  Receive Date: 20201125
  Receipt Date: 20201125
  Transmission Date: 20210114
  Serious: Yes (Other)
  Sender: FDA-Public Use
  Company Number: NVSC2020DE307347

PATIENT
  Age: 11 Year
  Sex: Female
  Weight: 55 kg

DRUGS (5)
  1. FOLIC ACID. [Concomitant]
     Active Substance: FOLIC ACID
     Indication: PROPHYLAXIS
     Dosage: 8 MG, QW
     Route: 065
     Dates: start: 20170901
  2. ONDANSETRON [Concomitant]
     Active Substance: ONDANSETRON
     Indication: PROPHYLAXIS
     Dosage: 4 MG, QW
     Route: 065
     Dates: start: 20181001
  3. THYROXIN [Concomitant]
     Active Substance: LEVOTHYROXINE
     Indication: HYPOTHYROIDISM
     Dosage: 50 UG
     Route: 065
  4. METHOTREXATE. [Suspect]
     Active Substance: METHOTREXATE
     Indication: JUVENILE IDIOPATHIC ARTHRITIS
     Dosage: 17.5 MG, QW
     Route: 065
     Dates: start: 20170901
  5. SIMPONI [Suspect]
     Active Substance: GOLIMUMAB
     Indication: JUVENILE IDIOPATHIC ARTHRITIS
     Dosage: 50 MG, Q4W (IN PREFILLED PEN)
     Route: 058
     Dates: start: 20171208

REACTIONS (4)
  - Transaminases increased [Recovered/Resolved]
  - Personality change [Unknown]
  - Rash pustular [Unknown]
  - Leukopenia [Recovered/Resolved]

NARRATIVE: CASE EVENT DATE: 20171215
